FAERS Safety Report 19579098 (Version 1)
Quarter: 2021Q3

REPORT INFORMATION
  Report Type: Other
  Country: IT (occurrence: IT)
  Receive Date: 20210720
  Receipt Date: 20210720
  Transmission Date: 20211014
  Serious: Yes (Hospitalization, Other)
  Sender: FDA-Public Use
  Company Number: IT-GUARDIAN DRUG COMPANY-2114019

PATIENT
  Age: 76 Year
  Sex: Male

DRUGS (2)
  1. AMOXICILLIN. [Interacting]
     Active Substance: AMOXICILLIN
     Route: 048
  2. CHILDRENS IBUPROFEN [Suspect]
     Active Substance: IBUPROFEN
     Indication: GINGIVITIS
     Route: 048

REACTIONS (2)
  - Drug interaction [Recovered/Resolved]
  - Encephalitis [Recovered/Resolved]
